FAERS Safety Report 12962790 (Version 4)
Quarter: 2019Q1

REPORT INFORMATION
  Report Type: Report from Study
  Country: JP (occurrence: JP)
  Receive Date: 20161121
  Receipt Date: 20190129
  Transmission Date: 20190417
  Serious: Yes (Death, Life-Threatening, Disabling, Other)
  Sender: FDA-Public Use
  Company Number: JP-AMGEN-JPNSP2016164749

PATIENT
  Age: 68 Year
  Sex: Male
  Weight: 57.5 kg

DRUGS (5)
  1. ACICLOVIR [Concomitant]
     Active Substance: ACYCLOVIR
     Indication: ANTIVIRAL PROPHYLAXIS
     Dosage: 200 MG, QD (EVERYDAY)
     Route: 048
     Dates: end: 20161011
  2. CARFILZOMIB [Suspect]
     Active Substance: CARFILZOMIB
     Dosage: 18 MG/M2, SINGLE
     Route: 041
     Dates: start: 20160928, end: 20160928
  3. CARFILZOMIB [Suspect]
     Active Substance: CARFILZOMIB
     Indication: PLASMA CELL MYELOMA
     Dosage: 12 MG/M2, EVERYDAY
     Route: 041
     Dates: start: 20160921, end: 20160922
  4. REVLIMID [Suspect]
     Active Substance: LENALIDOMIDE
     Indication: PLASMA CELL MYELOMA
     Dosage: 5 MG, QD (EVERYDAY)
     Route: 048
     Dates: start: 20160921, end: 20160923
  5. DEXAMETHASONE. [Concomitant]
     Active Substance: DEXAMETHASONE
     Indication: PLASMA CELL MYELOMA
     Dosage: 4 MG (21/09/2016,28/09/2016)
     Route: 065
     Dates: start: 20160921, end: 20160928

REACTIONS (3)
  - Respiratory tract infection [Not Recovered/Not Resolved]
  - Bone marrow failure [Not Recovered/Not Resolved]
  - Plasma cell myeloma [Unknown]

NARRATIVE: CASE EVENT DATE: 20160923
